FAERS Safety Report 5700631-2 (Version None)
Quarter: 2008Q2

REPORT INFORMATION
  Report Type: 
  Country: None (occurrence: None)
  Receive Date: 20080410
  Receipt Date: 20080402
  Transmission Date: 20081010
  Serious: Yes (Other)
  Sender: FDA-Public Use
  Company Number: CA-ASTRAZENECA-2008UW02740

PATIENT
  Sex: Female
  Weight: 105 kg

DRUGS (3)
  1. CRESTOR [Suspect]
     Indication: BLOOD CHOLESTEROL
     Route: 048
     Dates: start: 20040201, end: 20080128
  2. NOVOSEMIDE [Concomitant]
     Indication: DIURETIC THERAPY
     Route: 048
     Dates: start: 20071001
  3. ATIVAN [Concomitant]
     Indication: ANXIETY
     Route: 048
     Dates: start: 20061201

REACTIONS (13)
  - BLOOD GLUCOSE INCREASED [None]
  - BURNING SENSATION [None]
  - COUGH [None]
  - DYSPNOEA [None]
  - FASCIITIS [None]
  - JOINT SWELLING [None]
  - LARYNGITIS [None]
  - MUSCLE SPASMS [None]
  - MYALGIA [None]
  - OEDEMA PERIPHERAL [None]
  - PALPITATIONS [None]
  - PHARYNGEAL ERYTHEMA [None]
  - VENOUS STASIS [None]
